FAERS Safety Report 23716337 (Version 1)
Quarter: 2024Q2

REPORT INFORMATION
  Report Type: Spontaneous
  Country: US (occurrence: US)
  Receive Date: 20240408
  Receipt Date: 20240408
  Transmission Date: 20240715
  Serious: Yes (Other)
  Sender: FDA-Public Use
  Company Number: US-UCBSA-2023022705

PATIENT
  Sex: Female

DRUGS (3)
  1. BRIVIACT [Suspect]
     Active Substance: BRIVARACETAM
     Indication: Product used for unknown indication
     Dosage: 75 MILLIGRAM
     Route: 048
  2. BRIVIACT [Suspect]
     Active Substance: BRIVARACETAM
     Dosage: 150 MILLIGRAM
  3. BRIVIACT [Suspect]
     Active Substance: BRIVARACETAM
     Dosage: 100 MILLIGRAM

REACTIONS (2)
  - Hallucination [Unknown]
  - Anger [Unknown]
